FAERS Safety Report 25559763 (Version 1)
Quarter: 2025Q3

REPORT INFORMATION
  Report Type: Spontaneous
  Country: US (occurrence: US)
  Receive Date: 20250715
  Receipt Date: 20250715
  Transmission Date: 20251021
  Serious: No
  Sender: NOVO NORDISK
  Company Number: US-NOVOPROD-1420312

PATIENT
  Sex: Male

DRUGS (1)
  1. OZEMPIC [Suspect]
     Active Substance: SEMAGLUTIDE
     Indication: Type 2 diabetes mellitus
     Dosage: 0.25MG WEEKLY
     Route: 058
     Dates: start: 20250314

REACTIONS (4)
  - Weight decreased [Unknown]
  - Injection site pain [Unknown]
  - Product label confusion [Unknown]
  - Wrong technique in product usage process [Unknown]
